FAERS Safety Report 8115115-4 (Version None)
Quarter: 2012Q1

REPORT INFORMATION
  Report Type: 
  Country: None (occurrence: None)
  Receive Date: 20120206
  Receipt Date: 20120202
  Transmission Date: 20120608
  Serious: Yes (Other)
  Sender: FDA-Public Use
  Company Number: US-BAYER-2012-011228

PATIENT
  Age: 36 Year
  Sex: Female

DRUGS (1)
  1. BETASERON [Suspect]
     Indication: MULTIPLE SCLEROSIS
     Dosage: 0.0625MG WKS1-2,0.125MG WKS 3-4, 0.1875 MG WKS 5-6 THEN 0.25 MG WEEKLY THEREAFTER, QOD
     Route: 058
     Dates: start: 20110103

REACTIONS (1)
  - VAGINAL ABSCESS [None]
